FAERS Safety Report 5131555-X (Version None)
Quarter: 2006Q4

REPORT INFORMATION
  Report Type: 
  Country: None (occurrence: None)
  Receive Date: 20061020
  Receipt Date: 20061010
  Transmission Date: 20070319
  Serious: Yes (Other)
  Sender: FDA-Public Use
  Company Number: PHBS2006CY15733

PATIENT
  Age: 67 Year
  Sex: Female

DRUGS (2)
  1. ZOMETA [Suspect]
     Indication: METASTASES TO BONE
     Dosage: 4 MG, QMO
     Route: 042
     Dates: start: 20060201, end: 20060901
  2. FEMARA [Concomitant]
     Dosage: 2.5 MG/D
     Route: 048

REACTIONS (4)
  - MASS [None]
  - OSTEONECROSIS [None]
  - TOOTHACHE [None]
  - WOUND DEBRIDEMENT [None]
